FAERS Safety Report 6287987-X (Version None)
Quarter: 2009Q3

REPORT INFORMATION
  Report Type: 
  Country: None (occurrence: None)
  Receive Date: 20090729
  Receipt Date: 20070828
  Transmission Date: 20100115
  Serious: Yes (Hospitalization, Other)
  Sender: FDA-Public Use
  Company Number: US-ASTRAZENECA-2006UW10849

PATIENT
  Age: 14490 Day
  Sex: Female
  Weight: 65.8 kg

DRUGS (16)
  1. SEROQUEL [Suspect]
     Indication: MENTAL DISORDER
     Route: 048
     Dates: start: 20020101, end: 20040101
  2. SEROQUEL [Suspect]
     Dosage: 100-500 MG
     Route: 048
     Dates: start: 20031008
  3. ZYPREXA [Suspect]
     Dates: start: 20020101, end: 20040101
  4. GLYBURIDE [Concomitant]
     Dates: start: 20021106
  5. GLUCOPHAGE [Concomitant]
     Route: 048
     Dates: start: 20030101
  6. PROZAC [Concomitant]
     Dosage: 20 MG Q AM
     Route: 048
     Dates: start: 20031008
  7. ATIVAN [Concomitant]
     Dates: start: 20051115
  8. STARLIX [Concomitant]
     Dosage: 1-20 MG TID
     Dates: start: 20051115
  9. ACTOS [Concomitant]
     Dosage: 15-45 MG
     Dates: start: 20040105
  10. PROTONIX [Concomitant]
     Indication: NAUSEA
     Dates: start: 20051115
  11. PROTONIX [Concomitant]
     Indication: VOMITING
     Dates: start: 20051115
  12. PROTONIX [Concomitant]
     Indication: PROPHYLAXIS
     Dates: start: 20051115
  13. GLUCOVANCE [Concomitant]
     Dosage: 2.5/500 BID
     Dates: start: 20040105
  14. WELLBUTRIN SR [Concomitant]
     Dosage: 100 MG Q AM, 150 MG BID
     Dates: start: 20040105
  15. ASPIRIN [Concomitant]
     Route: 048
     Dates: start: 20040202
  16. LANTUS [Concomitant]
     Dates: start: 20060101

REACTIONS (4)
  - DIABETES MELLITUS [None]
  - DIABETIC GASTROPARESIS [None]
  - DIABETIC KETOACIDOSIS [None]
  - HYPERGLYCAEMIA [None]
